FAERS Safety Report 6984399-8 (Version None)
Quarter: 2010Q3

REPORT INFORMATION
  Report Type: 
  Country: None (occurrence: None)
  Receive Date: 20100915
  Receipt Date: 20100115
  Transmission Date: 20110219
  Serious: No
  Sender: FDA-Public Use
  Company Number: US-MYLANLABS-2010S1000821

PATIENT
  Age: 35 Year
  Sex: Male

DRUGS (1)
  1. BUTORPHANOL TARTRATE NASAL SPRAY, USP [Suspect]
     Indication: MIGRAINE
     Route: 045

REACTIONS (4)
  - DYSGEUSIA [None]
  - NASAL DISCOMFORT [None]
  - NAUSEA [None]
  - THROAT IRRITATION [None]
